FAERS Safety Report 5699951-X (Version None)
Quarter: 2008Q2

REPORT INFORMATION
  Report Type: 
  Country: None (occurrence: None)
  Receive Date: 20080410
  Receipt Date: 20080401
  Transmission Date: 20081010
  Serious: Yes (Hospitalization)
  Sender: FDA-Public Use
  Company Number: JP-MERCK-0712USA02246

PATIENT
  Age: 93 Year
  Sex: Male
  Weight: 45 kg

DRUGS (4)
  1. STROMECTOL [Suspect]
     Indication: ACARODERMATITIS
     Route: 048
     Dates: start: 20071108, end: 20071108
  2. [THERAPY UNSPECIFIED] [Suspect]
     Route: 048
  3. ALLELOCK [Concomitant]
     Indication: PRURITUS
     Route: 048
     Dates: start: 20071108
  4. EURAX [Concomitant]
     Indication: ACARODERMATITIS
     Route: 061
     Dates: start: 20071108, end: 20071126

REACTIONS (2)
  - BLOOD CREATINE PHOSPHOKINASE INCREASED [None]
  - ERYTHEMA [None]
